FAERS Safety Report 14793948 (Version 1)
Quarter: 2018Q2

REPORT INFORMATION
  Report Type: Other
  Country: JP (occurrence: JP)
  Receive Date: 20180423
  Receipt Date: 20180423
  Transmission Date: 20180711
  Serious: Yes (Death, Hospitalization, Other)
  Sender: FDA-Public Use
  Company Number: JP-ACTELION-A-CH2018-170754

PATIENT
  Age: 37 Year
  Sex: Female

DRUGS (8)
  1. THALIDOMIDE [Concomitant]
     Active Substance: THALIDOMIDE
     Indication: PULMONARY ARTERIAL HYPERTENSION
     Dosage: 50 MG, QD
  2. TADALAFIL [Concomitant]
     Active Substance: TADALAFIL
     Dosage: 10 MG, QD
  3. THALIDOMIDE [Concomitant]
     Active Substance: THALIDOMIDE
     Indication: HEREDITARY HAEMORRHAGIC TELANGIECTASIA
  4. AMBRISENTAN [Concomitant]
     Active Substance: AMBRISENTAN
     Dosage: 7.5 MG, QD
  5. BOSENTAN. [Suspect]
     Active Substance: BOSENTAN
     Indication: PULMONARY ARTERIAL HYPERTENSION
     Dosage: 125 MG, QD
     Route: 048
  6. AMBRISENTAN [Concomitant]
     Active Substance: AMBRISENTAN
     Dosage: 10 MG, QD
  7. AMBRISENTAN [Concomitant]
     Active Substance: AMBRISENTAN
     Dosage: 5 MG, UNK
  8. BERAPROST [Concomitant]
     Active Substance: BERAPROST
     Indication: PULMONARY ARTERIAL HYPERTENSION
     Dosage: 60 ?G, QD

REACTIONS (7)
  - Pulmonary arterial hypertension [Not Recovered/Not Resolved]
  - Condition aggravated [Unknown]
  - Right ventricular failure [Fatal]
  - Gastrointestinal haemorrhage [Unknown]
  - Anaemia [Recovering/Resolving]
  - Transfusion [Unknown]
  - Haemorrhage [Unknown]
